FAERS Safety Report 16405963 (Version 2)
Quarter: 2019Q2

REPORT INFORMATION
  Report Type: Report from Study
  Country: HU (occurrence: HU)
  Receive Date: 20190607
  Receipt Date: 20190626
  Transmission Date: 20190711
  Serious: Yes (Death, Hospitalization, Other)
  Sender: FDA-Public Use
  Company Number: PHHY2019HU131317

PATIENT
  Age: 45 Year
  Sex: Female
  Weight: 93 kg

DRUGS (4)
  1. LEVIL [Concomitant]
     Indication: EPILEPSY
     Dosage: 500 MG, QD
     Route: 048
     Dates: start: 20180904
  2. BACLOFEN. [Concomitant]
     Active Substance: BACLOFEN
     Indication: PRODUCT USED FOR UNKNOWN INDICATION
     Dosage: 30 MG, QD
     Route: 048
  3. GILENYA [Suspect]
     Active Substance: FINGOLIMOD HYDROCHLORIDE
     Indication: MULTIPLE SCLEROSIS
     Dosage: 0.5 MG, QD
     Route: 048
     Dates: start: 20140604
  4. CITAGEN [Concomitant]
     Indication: PRODUCT USED FOR UNKNOWN INDICATION
     Dosage: 30 MG, QD
     Route: 065

REACTIONS (6)
  - Seizure [Not Recovered/Not Resolved]
  - Hemiplegia [Not Recovered/Not Resolved]
  - Circulatory collapse [Fatal]
  - Cyanosis [Not Recovered/Not Resolved]
  - Epilepsy [Unknown]
  - Respiratory depression [Fatal]

NARRATIVE: CASE EVENT DATE: 20180904
